FAERS Safety Report 5295670-2 (Version None)
Quarter: 2007Q2

REPORT INFORMATION
  Report Type: 
  Country: None (occurrence: None)
  Receive Date: 20070411
  Receipt Date: 20070411
  Transmission Date: 20071010
  Serious: Yes (Life-Threatening, Other)
  Sender: FDA-Public Use
  Company Number: None

PATIENT
  Age: 42 Year
  Sex: Female
  Weight: 67.1324 kg

DRUGS (1)
  1. AMBIEN CR [Suspect]
     Indication: SLEEP DISORDER
     Dosage: 2 TABLETS 12.5 MGS EACH  EVERY NIGHT  PO
     Route: 048
     Dates: start: 20070405, end: 20070407

REACTIONS (8)
  - AMNESIA [None]
  - FALL [None]
  - FEELING ABNORMAL [None]
  - IMPAIRED DRIVING ABILITY [None]
  - INFLUENZA [None]
  - LOSS OF CONSCIOUSNESS [None]
  - OVERDOSE [None]
  - PALPITATIONS [None]
